FAERS Safety Report 8965179 (Version 1)
Quarter: 2012Q4

REPORT INFORMATION
  Report Type: 
  Country: US (occurrence: US)
  Receive Date: 20121213
  Receipt Date: 20121213
  Transmission Date: 20130627
  Serious: No
  Sender: FDA-Public Use
  Company Number: US-BRISTOL-MYERS SQUIBB COMPANY-16364606

PATIENT
  Age: 52 Year
  Sex: Female

DRUGS (6)
  1. IXEMPRA [Suspect]
     Indication: BREAST CANCER
     Dates: start: 20120117
  2. ZANTAC [Concomitant]
     Indication: PREMEDICATION
     Dates: start: 20120117
  3. BENADRYL [Concomitant]
     Indication: PREMEDICATION
  4. DECADRON [Concomitant]
     Indication: PREMEDICATION
  5. KYTRIL [Concomitant]
     Indication: PREMEDICATION
  6. EMEND [Concomitant]
     Indication: PREMEDICATION

REACTIONS (2)
  - Myalgia [Unknown]
  - Red blood cell count decreased [Unknown]
